FAERS Safety Report 19401014 (Version 2)
Quarter: 2021Q2

REPORT INFORMATION
  Report Type: Spontaneous
  Country: US (occurrence: US)
  Receive Date: 20210610
  Receipt Date: 20210616
  Transmission Date: 20210717
  Serious: No
  Sender: FDA-Public Use
  Company Number: US-SA-2021SA192504

PATIENT
  Sex: Female

DRUGS (2)
  1. DUPIXENT [Suspect]
     Active Substance: DUPILUMAB
     Dosage: 300 MG, BIM
     Route: 065
  2. DUPIXENT [Suspect]
     Active Substance: DUPILUMAB
     Indication: NASAL POLYPS
     Dosage: 600 MG, 1X
     Route: 065
     Dates: start: 2020, end: 2020

REACTIONS (4)
  - Tooth abscess [Not Recovered/Not Resolved]
  - Toothache [Not Recovered/Not Resolved]
  - Gingival recession [Not Recovered/Not Resolved]
  - Tooth infection [Not Recovered/Not Resolved]

NARRATIVE: CASE EVENT DATE: 2020
